FAERS Safety Report 8450714-1 (Version None)
Quarter: 2012Q2

REPORT INFORMATION
  Report Type: 
  Country: None (occurrence: None)
  Receive Date: 20120620
  Receipt Date: 20120613
  Transmission Date: 20120825
  Serious: Yes (Other)
  Sender: FDA-Public Use
  Company Number: JP-PFIZER INC-2012117294

PATIENT
  Age: 80 Year
  Sex: Female

DRUGS (2)
  1. TS-1 [Suspect]
     Indication: GASTRIC CANCER
     Dosage: UNK
     Route: 048
  2. CISPLATIN [Suspect]
     Indication: GASTRIC CANCER
     Dosage: 60 MG, 1X/DAY
     Route: 041

REACTIONS (1)
  - URINARY TRACT INFECTION [None]
